FAERS Safety Report 9472979 (Version 1)
Quarter: 2013Q3

REPORT INFORMATION
  Report Type: Spontaneous
  Country: US (occurrence: US)
  Receive Date: 20130823
  Receipt Date: 20130823
  Transmission Date: 20140515
  Serious: No
  Sender: FDA-Public Use
  Company Number: US-BRISTOL-MYERS SQUIBB COMPANY-17301458

PATIENT
  Age: 59 Year
  Sex: Female
  Weight: 58.96 kg

DRUGS (2)
  1. SPRYCEL (CML) TABS 100 MG [Suspect]
     Indication: CHRONIC MYELOID LEUKAEMIA
     Dosage: STARTED WITH:50MG DAILY (1 OR 2 PILLS) ABOUT 3 YEARS AGO?PRESCRIPTION#: P618299 (BMS PAF)
  2. DIGESTIVE ENZYMES [Concomitant]

REACTIONS (2)
  - Medication error [Unknown]
  - Treatment noncompliance [Unknown]
